FAERS Safety Report 7197797-7 (Version None)
Quarter: 2010Q4

REPORT INFORMATION
  Report Type: 
  Country: None (occurrence: None)
  Receive Date: 20101227
  Receipt Date: 20101207
  Transmission Date: 20110411
  Serious: No
  Sender: FDA-Public Use
  Company Number: US-B.I. PHARMACEUTICALS,INC./RIDGEFIELD-2010-BP-11958BP

PATIENT
  Sex: Female

DRUGS (2)
  1. COMBIVENT [Suspect]
     Indication: ASTHMA
     Route: 055
  2. FLOVENT [Concomitant]
     Indication: ASTHMA
     Dosage: 2 PUF
     Route: 055

REACTIONS (4)
  - INCREASED UPPER AIRWAY SECRETION [None]
  - PRODUCTIVE COUGH [None]
  - RESPIRATORY TRACT IRRITATION [None]
  - THROAT IRRITATION [None]
